FAERS Safety Report 21707409 (Version 2)
Quarter: 2022Q4

REPORT INFORMATION
  Report Type: Report from Study
  Country: AU (occurrence: AU)
  Receive Date: 20221209
  Receipt Date: 20221227
  Transmission Date: 20230113
  Serious: Yes (Life-Threatening)
  Sender: FDA-Public Use
  Company Number: AU-GILEAD-2022-0608325

PATIENT
  Age: 64 Year
  Sex: Male
  Weight: 74 kg

DRUGS (12)
  1. AXICABTAGENE CILOLEUCEL [Suspect]
     Active Substance: AXICABTAGENE CILOLEUCEL
     Indication: Diffuse large B-cell lymphoma stage IV
     Dosage: 68
     Route: 042
     Dates: start: 20201116, end: 20201116
  2. CYCLOPHOSPHAMIDE [Suspect]
     Active Substance: CYCLOPHOSPHAMIDE
     Indication: Bone marrow conditioning regimen
     Dosage: 500 MG/M2
     Route: 042
     Dates: start: 20201111, end: 20201113
  3. FLUDARABINE [Suspect]
     Active Substance: FLUDARABINE PHOSPHATE
     Indication: Bone marrow conditioning regimen
     Dosage: 30 MG/M2
     Route: 042
     Dates: start: 20201111, end: 20201113
  4. CYCLOPHOSPHAMIDE\DOXORUBICIN\PREDNISONE\RITUXIMAB\VINCRISTINE [Suspect]
     Active Substance: CYCLOPHOSPHAMIDE\DOXORUBICIN\PREDNISONE\RITUXIMAB\VINCRISTINE
     Indication: Diffuse large B-cell lymphoma stage IV
     Dosage: SEE NARRATIVE
     Route: 042
     Dates: start: 20200916, end: 20201027
  5. METFORMIN [Concomitant]
     Active Substance: METFORMIN HYDROCHLORIDE
     Dosage: 1000,MG,TWICE DAILY
     Route: 048
     Dates: start: 2014
  6. GLICLAZIDE [Concomitant]
     Active Substance: GLICLAZIDE
     Dosage: 120,MG,DAILY
     Route: 048
     Dates: start: 2016
  7. EMPAGLIFLOZIN [Concomitant]
     Active Substance: EMPAGLIFLOZIN
     Dosage: 25,MG,DAILY
     Route: 048
     Dates: start: 2018
  8. NOVORAPID [Concomitant]
     Active Substance: INSULIN ASPART
     Dosage: 16,IU,DAILY
     Route: 058
     Dates: start: 202001
  9. ROSUVASTATIN/EZETIMIBE TEVA [Concomitant]
     Dosage: 40/10,MG,DAILY
     Route: 048
     Dates: start: 20201116
  10. APIXABAN [Concomitant]
     Active Substance: APIXABAN
     Dosage: 5,MG,DAILY
     Route: 048
     Dates: start: 20201222
  11. SULFAMETHOXAZOLE\TRIMETHOPRIM [Concomitant]
     Active Substance: SULFAMETHOXAZOLE\TRIMETHOPRIM
     Dosage: 1,OTHER,OTHER
     Route: 048
     Dates: start: 20201222
  12. PERINDOPRIL [Concomitant]
     Active Substance: PERINDOPRIL
     Dosage: 2.5,MG,DAILY
     Route: 048
     Dates: start: 20210209, end: 2021

REACTIONS (1)
  - Transformation to acute myeloid leukaemia [Not Recovered/Not Resolved]

NARRATIVE: CASE EVENT DATE: 20221130
